FAERS Safety Report 13778213 (Version 1)
Quarter: 2017Q3

REPORT INFORMATION
  Report Type: Report from Study
  Country: JP (occurrence: JP)
  Receive Date: 20170721
  Receipt Date: 20170721
  Transmission Date: 20171127
  Serious: Yes (Life-Threatening, Hospitalization)
  Sender: FDA-Public Use
  Company Number: JP-ASTRAZENECA-2016SE10651

PATIENT
  Age: 956 Month
  Sex: Male

DRUGS (6)
  1. ONGLYZA [Suspect]
     Active Substance: SAXAGLIPTIN HYDROCHLORIDE
     Indication: TYPE 2 DIABETES MELLITUS
     Route: 048
     Dates: start: 20140708
  2. FEBURIC [Concomitant]
     Active Substance: FEBUXOSTAT
     Indication: HYPERURICAEMIA
     Route: 048
  3. STROMECTOL [Concomitant]
     Active Substance: IVERMECTIN
     Indication: ACARODERMATITIS
     Route: 048
     Dates: start: 20151027
  4. AMLODIPINE [Concomitant]
     Active Substance: AMLODIPINE BESYLATE
     Indication: HYPERTENSION
     Route: 048
  5. GLUFAST [Concomitant]
     Active Substance: MITIGLINIDE
     Indication: TYPE 2 DIABETES MELLITUS
     Route: 048
     Dates: start: 20141024, end: 20160719
  6. STROMECTOL [Concomitant]
     Active Substance: IVERMECTIN
     Indication: ACARODERMATITIS
     Route: 048
     Dates: start: 20151105

REACTIONS (3)
  - Myocardial infarction [Recovered/Resolved]
  - Sepsis [Recovered/Resolved]
  - Acarodermatitis [Recovered/Resolved]

NARRATIVE: CASE EVENT DATE: 201510
